FAERS Safety Report 9921672 (Version 1)
Quarter: 2014Q1

REPORT INFORMATION
  Report Type: Report from Study
  Country: US (occurrence: US)
  Receive Date: 20140225
  Receipt Date: 20140225
  Transmission Date: 20141002
  Serious: Yes (Other)
  Sender: FDA-Public Use
  Company Number: US-ASTELLAS-2014US001885

PATIENT
  Age: 52 Year
  Sex: Female

DRUGS (24)
  1. ERLOTINIB TABLET [Suspect]
     Indication: NON-SMALL CELL LUNG CANCER
     Dosage: 150 MG, UID/QD
     Route: 065
     Dates: start: 200811, end: 200908
  2. ERLOTINIB TABLET [Suspect]
     Dosage: 150 MG, UID/QD
     Route: 065
     Dates: start: 200910
  3. ERLOTINIB TABLET [Suspect]
     Dosage: 75 MG, UID/QD
     Route: 065
     Dates: start: 20100128
  4. ERLOTINIB TABLET [Suspect]
     Dosage: 75MG AND 150MG ALTERNATING EVERY OTHER DAY
     Route: 065
     Dates: start: 20100328
  5. ERLOTINIB TABLET [Suspect]
     Dosage: 75 MG, UID/QD
     Route: 065
     Dates: start: 20100822
  6. ERLOTINIB TABLET [Suspect]
     Dosage: 100 MG, UID/QD
     Route: 065
     Dates: start: 201008
  7. ERLOTINIB TABLET [Suspect]
     Dosage: 75 MG, UID/QD
     Route: 065
     Dates: start: 20100831
  8. ERLOTINIB TABLET [Suspect]
     Dosage: 100 MG, UID/QD
     Route: 065
     Dates: start: 2012
  9. AVASTIN /01555201/ [Suspect]
     Indication: NON-SMALL CELL LUNG CANCER
     Dosage: 963 MG, Q3W
     Route: 042
     Dates: start: 20080507, end: 20130108
  10. CARBOPLATIN [Concomitant]
     Indication: PRODUCT USED FOR UNKNOWN INDICATION
     Dosage: UNK
     Route: 065
  11. TAXOL [Concomitant]
     Indication: PRODUCT USED FOR UNKNOWN INDICATION
     Dosage: INITIAL DOSE REDUCEDBY 25% ON-JUL-2008
     Route: 065
  12. CLINDAMYCIN [Concomitant]
     Indication: PRODUCT USED FOR UNKNOWN INDICATION
     Dosage: 1 %, UID/QD
     Route: 065
  13. IBUPROFEN [Concomitant]
     Indication: PAIN
     Dosage: UNK
     Route: 065
  14. TYLENOL                            /00020001/ [Concomitant]
     Indication: PAIN
     Dosage: UNK
     Route: 065
  15. OXYCODONE [Concomitant]
     Indication: PRODUCT USED FOR UNKNOWN INDICATION
     Dosage: UNK
     Route: 065
  16. RECLAST [Concomitant]
     Indication: PRODUCT USED FOR UNKNOWN INDICATION
     Dosage: UNK
     Route: 065
  17. MACROBID                           /00024401/ [Concomitant]
     Indication: PROPHYLAXIS
     Dosage: UNK
     Route: 065
  18. ADVAIR [Concomitant]
     Indication: PRODUCT USED FOR UNKNOWN INDICATION
     Dosage: UNK
     Route: 065
  19. SPIRIVA [Concomitant]
     Indication: PRODUCT USED FOR UNKNOWN INDICATION
     Dosage: UNK
     Route: 065
  20. ALBUTEROL                          /00139501/ [Concomitant]
     Indication: PRODUCT USED FOR UNKNOWN INDICATION
     Dosage: UNK
     Route: 065
  21. MEGACE ES [Concomitant]
     Indication: PRODUCT USED FOR UNKNOWN INDICATION
     Dosage: 625 MG, UID/QD
     Route: 048
  22. PRILOSEC                           /00661201/ [Concomitant]
     Indication: PRODUCT USED FOR UNKNOWN INDICATION
     Dosage: UNK
     Route: 065
  23. XANAX [Concomitant]
     Indication: PRODUCT USED FOR UNKNOWN INDICATION
     Dosage: 0.5 MG,EVERY 8 HOURS PRN
     Route: 048
  24. AZITHROMYCIN [Concomitant]
     Indication: PRODUCT USED FOR UNKNOWN INDICATION
     Dosage: UNK
     Route: 065

REACTIONS (53)
  - Basal cell carcinoma [Unknown]
  - Neutropenia [Unknown]
  - Hyperbilirubinaemia [Unknown]
  - Haemoptysis [Unknown]
  - Urinary tract infection [Recovered/Resolved]
  - Cerebrovascular accident [Unknown]
  - Malignant neoplasm of spinal cord [Unknown]
  - Brain neoplasm malignant [Unknown]
  - Malignant neoplasm progression [Unknown]
  - Proteinuria [Recovered/Resolved]
  - Magnesium metabolism disorder [Unknown]
  - Osteoporosis [Unknown]
  - Fall [Recovering/Resolving]
  - Iron deficiency anaemia [Unknown]
  - Dehydration [Unknown]
  - Vertigo [Unknown]
  - Alopecia [Recovered/Resolved]
  - Hypercalcaemia [Recovered/Resolved]
  - Asthma [Unknown]
  - Neuropathy peripheral [Recovered/Resolved]
  - Neck pain [Not Recovered/Not Resolved]
  - Dysuria [Unknown]
  - Arthritis [Unknown]
  - Haematuria [Unknown]
  - Urine leukocyte esterase positive [Unknown]
  - Muscle spasms [Unknown]
  - Osteopenia [Unknown]
  - Neurological symptom [Unknown]
  - Joint injury [Unknown]
  - Gastrointestinal disorder [Recovering/Resolving]
  - Post-traumatic neck syndrome [Unknown]
  - Rhinitis [Unknown]
  - Malaise [Unknown]
  - Bronchitis [Recovered/Resolved]
  - Liver function test abnormal [Unknown]
  - Pleuritic pain [Unknown]
  - Mouth ulceration [Unknown]
  - Influenza like illness [Unknown]
  - Weight decreased [Recovering/Resolving]
  - Diarrhoea [Recovering/Resolving]
  - Decreased appetite [Recovering/Resolving]
  - Nausea [Unknown]
  - Paronychia [Recovered/Resolved]
  - Dermatitis acneiform [Not Recovered/Not Resolved]
  - Asthenia [Unknown]
  - Back pain [Unknown]
  - Gastritis [Unknown]
  - Nail disorder [Unknown]
  - Skin ulcer [Unknown]
  - Rash [Unknown]
  - Dry skin [Unknown]
  - Fatigue [Unknown]
  - Cough [Unknown]
